FAERS Safety Report 17907153 (Version 1)
Quarter: 2020Q2

REPORT INFORMATION
  Report Type: Spontaneous
  Country: US (occurrence: US)
  Receive Date: 20200617
  Receipt Date: 20200617
  Transmission Date: 20200714
  Serious: Yes (Death)
  Sender: FDA-Public Use
  Company Number: None

PATIENT
  Age: 13 Year
  Sex: Male
  Weight: 51.1 kg

DRUGS (5)
  1. METHOTREXATE. [Suspect]
     Active Substance: METHOTREXATE
     Dates: end: 20140529
  2. ONCASPAR [Suspect]
     Active Substance: PEGASPARGASE
     Dosage: ?          OTHER DOSE:3350 UNIT;?
     Dates: end: 20140525
  3. VINCRISTINE SULFATE. [Suspect]
     Active Substance: VINCRISTINE SULFATE
     Dates: end: 20140605
  4. CYTARABINE. [Suspect]
     Active Substance: CYTARABINE
     Dates: end: 20140522
  5. DEXAMETHASONE. [Concomitant]
     Active Substance: DEXAMETHASONE
     Dates: end: 20140605

REACTIONS (3)
  - Neoplasm progression [None]
  - Acute myeloid leukaemia [None]
  - Leukaemia recurrent [None]

NARRATIVE: CASE EVENT DATE: 20170921
